FAERS Safety Report 23496796 (Version 1)
Quarter: 2024Q1

REPORT INFORMATION
  Report Type: Spontaneous
  Country: US (occurrence: None)
  Receive Date: 20240207
  Receipt Date: 20240207
  Transmission Date: 20240409
  Serious: No
  Sender: FDA-Public Use
  Company Number: US-ROCHE-3422356

PATIENT
  Age: 52 Year
  Sex: Female

DRUGS (6)
  1. XOLAIR [Suspect]
     Active Substance: OMALIZUMAB
     Indication: Osteoarthritis
     Dosage: STRENGTH: 150MG/ML
     Route: 058
     Dates: start: 202108
  2. XOLAIR [Suspect]
     Active Substance: OMALIZUMAB
  3. XOLAIR [Suspect]
     Active Substance: OMALIZUMAB
  4. XOLAIR [Suspect]
     Active Substance: OMALIZUMAB
     Indication: Urticaria
  5. XOLAIR [Suspect]
     Active Substance: OMALIZUMAB
  6. XOLAIR [Suspect]
     Active Substance: OMALIZUMAB

REACTIONS (5)
  - Product dose omission issue [Unknown]
  - Off label use [Unknown]
  - Product packaging quantity issue [Unknown]
  - No adverse event [Unknown]
  - Syringe issue [Unknown]

NARRATIVE: CASE EVENT DATE: 20210801
